FAERS Safety Report 25924090 (Version 1)
Quarter: 2025Q4

REPORT INFORMATION
  Report Type: Spontaneous
  Country: EU (occurrence: EU)
  Receive Date: 20251015
  Receipt Date: 20251015
  Transmission Date: 20260117
  Serious: Yes (Hospitalization)
  Sender: MYLAN
  Company Number: EU-MYLANLABS-2025M1086796

PATIENT
  Sex: Male

DRUGS (32)
  1. CLOZAPINE [Suspect]
     Active Substance: CLOZAPINE
     Indication: Schizophrenia
     Dosage: UNK, QD (50 ? 50 ? 175 MG THEN 00 ? 50 ? 225 MG)
  2. CLOZAPINE [Suspect]
     Active Substance: CLOZAPINE
     Dosage: UNK, QD (50 ? 50 ? 175 MG THEN 00 ? 50 ? 225 MG)
     Route: 065
  3. CLOZAPINE [Suspect]
     Active Substance: CLOZAPINE
     Dosage: UNK, QD (50 ? 50 ? 175 MG THEN 00 ? 50 ? 225 MG)
     Route: 065
  4. CLOZAPINE [Suspect]
     Active Substance: CLOZAPINE
     Dosage: UNK, QD (50 ? 50 ? 175 MG THEN 00 ? 50 ? 225 MG)
  5. RISPERIDONE [Suspect]
     Active Substance: RISPERIDONE
     Indication: Schizophrenia
     Dosage: UNK
  6. RISPERIDONE [Suspect]
     Active Substance: RISPERIDONE
     Dosage: UNK
     Route: 065
  7. RISPERIDONE [Suspect]
     Active Substance: RISPERIDONE
     Dosage: UNK
     Route: 065
  8. RISPERIDONE [Suspect]
     Active Substance: RISPERIDONE
     Dosage: UNK
  9. RISPERIDONE [Suspect]
     Active Substance: RISPERIDONE
     Dosage: 8 MILLIGRAM, QD (3?0?5 MG)
  10. RISPERIDONE [Suspect]
     Active Substance: RISPERIDONE
     Dosage: 8 MILLIGRAM, QD (3?0?5 MG)
     Route: 065
  11. RISPERIDONE [Suspect]
     Active Substance: RISPERIDONE
     Dosage: 8 MILLIGRAM, QD (3?0?5 MG)
  12. RISPERIDONE [Suspect]
     Active Substance: RISPERIDONE
     Dosage: 8 MILLIGRAM, QD (3?0?5 MG)
     Route: 065
  13. RISPERIDONE [Suspect]
     Active Substance: RISPERIDONE
     Dosage: UNK (DOSE REDUCED)
     Route: 065
  14. RISPERIDONE [Suspect]
     Active Substance: RISPERIDONE
     Dosage: UNK (DOSE REDUCED)
     Route: 065
  15. RISPERIDONE [Suspect]
     Active Substance: RISPERIDONE
     Dosage: UNK (DOSE REDUCED)
  16. RISPERIDONE [Suspect]
     Active Substance: RISPERIDONE
     Dosage: UNK (DOSE REDUCED)
  17. CARIPRAZINE [Suspect]
     Active Substance: CARIPRAZINE
     Indication: Schizophrenia
     Dosage: 6 MILLIGRAM, AM (MAXIMUM DOSE OF 6 MG/DAY)
  18. CARIPRAZINE [Suspect]
     Active Substance: CARIPRAZINE
     Dosage: 6 MILLIGRAM, AM (MAXIMUM DOSE OF 6 MG/DAY)
  19. CARIPRAZINE [Suspect]
     Active Substance: CARIPRAZINE
     Dosage: 6 MILLIGRAM, AM (MAXIMUM DOSE OF 6 MG/DAY)
     Route: 065
  20. CARIPRAZINE [Suspect]
     Active Substance: CARIPRAZINE
     Dosage: 6 MILLIGRAM, AM (MAXIMUM DOSE OF 6 MG/DAY)
     Route: 065
  21. CARIPRAZINE [Suspect]
     Active Substance: CARIPRAZINE
     Dosage: 4.5 MILLIGRAM, QD (DAILY)
  22. CARIPRAZINE [Suspect]
     Active Substance: CARIPRAZINE
     Dosage: 4.5 MILLIGRAM, QD (DAILY)
  23. CARIPRAZINE [Suspect]
     Active Substance: CARIPRAZINE
     Dosage: 4.5 MILLIGRAM, QD (DAILY)
     Route: 065
  24. CARIPRAZINE [Suspect]
     Active Substance: CARIPRAZINE
     Dosage: 4.5 MILLIGRAM, QD (DAILY)
     Route: 065
  25. CARIPRAZINE [Suspect]
     Active Substance: CARIPRAZINE
     Dosage: 3 MILLIGRAM, QD (DAILY) (DOSE REDUCED)
  26. CARIPRAZINE [Suspect]
     Active Substance: CARIPRAZINE
     Dosage: 3 MILLIGRAM, QD (DAILY) (DOSE REDUCED)
     Route: 065
  27. CARIPRAZINE [Suspect]
     Active Substance: CARIPRAZINE
     Dosage: 3 MILLIGRAM, QD (DAILY) (DOSE REDUCED)
  28. CARIPRAZINE [Suspect]
     Active Substance: CARIPRAZINE
     Dosage: 3 MILLIGRAM, QD (DAILY) (DOSE REDUCED)
     Route: 065
  29. LORAZEPAM [Concomitant]
     Active Substance: LORAZEPAM
     Dosage: 3 MILLIGRAM, QD (1?0?1 MG)
  30. LORAZEPAM [Concomitant]
     Active Substance: LORAZEPAM
     Dosage: 3 MILLIGRAM, QD (1?0?1 MG)
     Route: 065
  31. LORAZEPAM [Concomitant]
     Active Substance: LORAZEPAM
     Dosage: 3 MILLIGRAM, QD (1?0?1 MG)
     Route: 065
  32. LORAZEPAM [Concomitant]
     Active Substance: LORAZEPAM
     Dosage: 3 MILLIGRAM, QD (1?0?1 MG)

REACTIONS (13)
  - Rehabilitation therapy [Recovered/Resolved]
  - Sedation [Recovered/Resolved]
  - Orthostatic hypotension [Unknown]
  - Confusional state [Unknown]
  - Fatigue [Unknown]
  - Bradyphrenia [Unknown]
  - Disturbance in attention [Unknown]
  - Mental fatigue [Unknown]
  - Dyslipidaemia [Unknown]
  - Hypovitaminosis [Unknown]
  - Weight increased [Recovering/Resolving]
  - Dizziness [Unknown]
  - Drug ineffective [Unknown]
